FAERS Safety Report 16629519 (Version 1)
Quarter: 2019Q3

REPORT INFORMATION
  Report Type: Spontaneous
  Country: GB (occurrence: GB)
  Receive Date: 20190725
  Receipt Date: 20190725
  Transmission Date: 20191004
  Serious: Yes (Hospitalization)
  Sender: FDA-Public Use
  Company Number: GB-PERRIGO-19GB008599

PATIENT
  Age: 48 Year
  Sex: Female

DRUGS (4)
  1. TIBOLONE [Concomitant]
     Active Substance: TIBOLONE
     Indication: PRODUCT USED FOR UNKNOWN INDICATION
     Dosage: ACUTE
  2. DULOXETINE. [Concomitant]
     Active Substance: DULOXETINE
     Indication: PRODUCT USED FOR UNKNOWN INDICATION
     Dates: start: 20181024
  3. LINACLOTIDE [Concomitant]
     Active Substance: LINACLOTIDE
     Indication: PRODUCT USED FOR UNKNOWN INDICATION
     Dates: start: 20181107
  4. IBUPROFEN. [Suspect]
     Active Substance: IBUPROFEN
     Indication: PRODUCT USED FOR UNKNOWN INDICATION
     Dosage: UNK
     Route: 048

REACTIONS (2)
  - Gastrointestinal haemorrhage [Unknown]
  - Gastric ulcer [Unknown]
